FAERS Safety Report 21083371 (Version 2)
Quarter: 2022Q3

REPORT INFORMATION
  Report Type: Spontaneous
  Country: US (occurrence: US)
  Receive Date: 20220714
  Receipt Date: 20220718
  Transmission Date: 20221027
  Serious: Yes (Other)
  Sender: FDA-Public Use
  Company Number: US-PFIZER INC-202200957128

PATIENT
  Sex: Female

DRUGS (2)
  1. DILANTIN [Suspect]
     Active Substance: PHENYTOIN
     Indication: Generalised tonic-clonic seizure
     Dosage: UNK
  2. DILANTIN [Suspect]
     Active Substance: PHENYTOIN
     Indication: Epilepsy
     Dosage: 400 MG, DAILY

REACTIONS (5)
  - Syncope [Unknown]
  - Blindness [Unknown]
  - Illness [Unknown]
  - Dizziness [Unknown]
  - Vision blurred [Unknown]
